FAERS Safety Report 14247370 (Version 1)
Quarter: 2017Q4

REPORT INFORMATION
  Report Type: Spontaneous
  Country: EG (occurrence: US)
  Receive Date: 20171204
  Receipt Date: 20171204
  Transmission Date: 20180321
  Serious: Yes (Other)
  Sender: FDA-Public Use
  Company Number: EG-AMNEAL PHARMACEUTICALS-2017AMN01022

PATIENT
  Age: 35 Year
  Sex: Male

DRUGS (1)
  1. ACYCLOVIR. [Suspect]
     Active Substance: ACYCLOVIR
     Indication: ENCEPHALITIS VIRAL
     Dosage: 750 MG, 1X/DAY (750 MG, 3X/DAY BEFORE DOSE DECREASE)
     Route: 042

REACTIONS (3)
  - Nephropathy [Recovering/Resolving]
  - Blood creatinine increased [Recovering/Resolving]
  - Depressed level of consciousness [Recovering/Resolving]
